FAERS Safety Report 8963168 (Version 1)
Quarter: 2012Q4

REPORT INFORMATION
  Report Type: 
  Country: US (occurrence: US)
  Receive Date: 20121214
  Receipt Date: 20121214
  Transmission Date: 20130627
  Serious: Yes (Hospitalization)
  Sender: FDA-Public Use
  Company Number: US-ELI_LILLY_AND_COMPANY-US201212001864

PATIENT
  Age: 75 Year
  Sex: Female

DRUGS (3)
  1. HUMALOG 25% LISPRO, 75% NPL [Suspect]
     Indication: DIABETES MELLITUS
     Dosage: 35 u, bid
  2. HUMALOG 25% LISPRO, 75% NPL [Suspect]
     Dosage: 20 u, tid
  3. GLUCOPHAGE [Concomitant]

REACTIONS (4)
  - Arthritis [Unknown]
  - Diabetic neuropathy [Not Recovered/Not Resolved]
  - Blood glucose increased [Recovered/Resolved]
  - Acne [Recovering/Resolving]
